FAERS Safety Report 10272509 (Version 1)
Quarter: 2014Q2

REPORT INFORMATION
  Report Type: Spontaneous
  Country: US (occurrence: None)
  Receive Date: 20140627
  Receipt Date: 20140627
  Transmission Date: 20141212
  Serious: Yes (Hospitalization)
  Sender: FDA-Public Use
  Company Number: None

PATIENT
  Age: 15 Year
  Sex: Male
  Weight: 70.2 kg

DRUGS (5)
  1. DEXAMETHASONE [Suspect]
     Dates: end: 20140615
  2. DOXORUBICIN HYDROCHLORIDE [Suspect]
     Dosage: DAY 8 CHEMOTHERAPY HELD?
     Dates: end: 20140609
  3. METHOTREXATE [Suspect]
     Dates: end: 20140609
  4. PEG-L ASPARAGINASE (PEGASPARGASE, ONCOSPAR) [Suspect]
     Dates: end: 20140612
  5. VINCRISTINE SULFATE [Suspect]
     Dosage: DAY 8 VCR HELD
     Dates: end: 20140609

REACTIONS (8)
  - Muscular weakness [None]
  - Polyuria [None]
  - Polydipsia [None]
  - Vomiting [None]
  - Malaise [None]
  - Pallor [None]
  - Blood glucose increased [None]
  - Blood sodium decreased [None]
